FAERS Safety Report 9774069 (Version 2)
Quarter: 2013Q4

REPORT INFORMATION
  Report Type: Report from Study
  Country: HU (occurrence: HU)
  Receive Date: 20131220
  Receipt Date: 20131220
  Transmission Date: 20140711
  Serious: Yes (Life-Threatening, Hospitalization)
  Sender: FDA-Public Use
  Company Number: HU-ROCHE-1205303

PATIENT
  Age: 61 Year
  Sex: Female
  Weight: 59 kg

DRUGS (7)
  1. OBINUTUZUMAB [Suspect]
     Indication: DIFFUSE LARGE B-CELL LYMPHOMA
     Dosage: MOST RECENT DOSE ON 17/MAR/2013 (LAST DOSE CONCENTRATION TAKEN WAS 4 MG/ML AND LAST VOLUME WAS 1000
     Route: 042
     Dates: start: 20130310
  2. CYCLOPHOSPHAMIDE [Suspect]
     Indication: DIFFUSE LARGE B-CELL LYMPHOMA
     Dosage: MOST RECENT DOSE ON 10/MAR/2013
     Route: 042
     Dates: start: 20130310
  3. DOXORUBICIN [Suspect]
     Indication: DIFFUSE LARGE B-CELL LYMPHOMA
     Dosage: MOST RECENT DOSE ON 10/MAR/2013
     Route: 042
     Dates: start: 20130310
  4. VINCRISTINE [Suspect]
     Indication: DIFFUSE LARGE B-CELL LYMPHOMA
     Dosage: MOST RECENT DOSE ON 10/MAR/2013
     Route: 042
     Dates: start: 20130310
  5. PREDNISONE [Suspect]
     Indication: DIFFUSE LARGE B-CELL LYMPHOMA
     Dosage: MOST RECENT DOSE ON 15/MAR/2013 (100 MG)
     Route: 048
     Dates: start: 20130310
  6. MILURIT [Concomitant]
     Dosage: AUC 5
     Route: 065
     Dates: start: 20130304
  7. BISOPROLOL [Concomitant]
     Indication: SINUS TACHYCARDIA
     Route: 065
     Dates: start: 20130225

REACTIONS (1)
  - Febrile neutropenia [Recovered/Resolved]
